FAERS Safety Report 6127020-3 (Version None)
Quarter: 2009Q1

REPORT INFORMATION
  Report Type: 
  Country: None (occurrence: None)
  Receive Date: 20090320
  Receipt Date: 20090310
  Transmission Date: 20090719
  Serious: Yes (Other)
  Sender: FDA-Public Use
  Company Number: PHHY2009FI08745

PATIENT

DRUGS (6)
  1. GLEEVEC [Suspect]
     Indication: CHRONIC MYELOID LEUKAEMIA
     Dosage: 400 MG DAILY
     Route: 048
     Dates: start: 20031201
  2. GLEEVEC [Suspect]
     Dosage: 300 MG, BID
     Route: 048
     Dates: start: 20050101
  3. RENITEC COMP. [Concomitant]
     Indication: HYPERTONIA
     Dosage: 1 TABLET DAILY
     Route: 048
  4. EMGESAN [Concomitant]
     Indication: MUSCLE SPASMS
     Dosage: 3 TABLETS DAILY
     Route: 048
  5. BURANA [Concomitant]
     Indication: PAIN
     Dosage: 600 MG
  6. PARACETAMOL [Concomitant]
     Indication: PAIN

REACTIONS (10)
  - ALANINE AMINOTRANSFERASE INCREASED [None]
  - BLOOD CREATINE PHOSPHOKINASE INCREASED [None]
  - BLOOD LACTATE DEHYDROGENASE INCREASED [None]
  - GINGIVAL INFECTION [None]
  - INFLUENZA [None]
  - MUSCULAR WEAKNESS [None]
  - MYALGIA [None]
  - MYOSITIS [None]
  - RED BLOOD CELL SEDIMENTATION RATE ABNORMAL [None]
  - TOOTH EXTRACTION [None]
